FAERS Safety Report 5391931-7 (Version None)
Quarter: 2007Q3

REPORT INFORMATION
  Report Type: 
  Country: None (occurrence: None)
  Receive Date: 20070720
  Receipt Date: 20070709
  Transmission Date: 20080115
  Serious: Yes (Hospitalization)
  Sender: FDA-Public Use
  Company Number: PHEH2007US05487

PATIENT
  Age: 46 Year
  Sex: Female

DRUGS (1)
  1. ZELNORM [Suspect]
     Indication: IRRITABLE BOWEL SYNDROME
     Dosage: 6 MG, BID
     Route: 048
     Dates: start: 20041101, end: 20070406

REACTIONS (4)
  - ANGINA UNSTABLE [None]
  - BLOOD PRESSURE FLUCTUATION [None]
  - CARDIAC VALVE DISEASE [None]
  - CHEST PAIN [None]
